FAERS Safety Report 6442398-9 (Version None)
Quarter: 2009Q4

REPORT INFORMATION
  Report Type: 
  Country: None (occurrence: None)
  Receive Date: 20091112
  Receipt Date: 20091030
  Transmission Date: 20100525
  Serious: Yes (Other)
  Sender: FDA-Public Use
  Company Number: A-JP2009-28581

PATIENT
  Age: 68 Year
  Sex: Male

DRUGS (4)
  1. TRACLEER [Suspect]
     Indication: PULMONARY ARTERIAL HYPERTENSION
     Dosage: 62.5 MG, BID, ORAL
     Route: 048
     Dates: start: 20090209
  2. FUROSEMIDE [Suspect]
  3. WARFARIN SODIUM [Suspect]
  4. DIGOXIN [Concomitant]

REACTIONS (5)
  - DEHYDRATION [None]
  - DRUG EFFECT INCREASED [None]
  - EPISTAXIS [None]
  - HEPATIC ENCEPHALOPATHY [None]
  - POOR QUALITY SLEEP [None]
